FAERS Safety Report 12914626 (Version 1)
Quarter: 2016Q4

REPORT INFORMATION
  Report Type: Spontaneous
  Country: US (occurrence: US)
  Receive Date: 20161106
  Receipt Date: 20161106
  Transmission Date: 20170207
  Serious: No
  Sender: FDA-Public Use
  Company Number: US-RELYPSA-RLY2016003231

PATIENT
  Sex: Male

DRUGS (19)
  1. RANEXA [Concomitant]
     Active Substance: RANOLAZINE
  2. PANTOPRAZOLE [Concomitant]
     Active Substance: PANTOPRAZOLE SODIUM
  3. FLECAINIDE [Concomitant]
     Active Substance: FLECAINIDE
  4. OMEPRAZOLE. [Concomitant]
     Active Substance: OMEPRAZOLE
  5. XARELTO [Concomitant]
     Active Substance: RIVAROXABAN
  6. VELTASSA [Suspect]
     Active Substance: PATIROMER
     Indication: HYPERKALAEMIA
     Dosage: 8.4 MG, QD
     Route: 048
     Dates: start: 201609
  7. METAMUCIL [Concomitant]
     Active Substance: PLANTAGO SEED
  8. VITAMINS WITH MINERALS [Concomitant]
     Active Substance: MINERALS\VITAMINS
  9. FLUOROURACIL. [Concomitant]
     Active Substance: FLUOROURACIL
  10. TYLENOL [Concomitant]
     Active Substance: ACETAMINOPHEN
  11. FINASTERIDE. [Concomitant]
     Active Substance: FINASTERIDE
  12. SODIUM POLYSTYRENE SULPHONATE [Concomitant]
  13. TRIAMTERENE AND HYDROCHLOROTHIAZIDE [Concomitant]
     Active Substance: HYDROCHLOROTHIAZIDE\TRIAMTERENE
  14. BETAMETH                           /00008502/ [Concomitant]
  15. ATORVASTATIN [Concomitant]
     Active Substance: ATORVASTATIN
  16. OCUVITE [Concomitant]
     Active Substance: VITAMINS
  17. AMLODIPINE [Concomitant]
     Active Substance: AMLODIPINE BESYLATE
  18. TEMAZEPAM. [Concomitant]
     Active Substance: TEMAZEPAM
  19. LOSARTAN POTASSIUM. [Concomitant]
     Active Substance: LOSARTAN POTASSIUM

REACTIONS (1)
  - Rash [Unknown]

NARRATIVE: CASE EVENT DATE: 2016
